FAERS Safety Report 25630646 (Version 2)
Quarter: 2025Q3

REPORT INFORMATION
  Report Type: Report from Study
  Country: CR (occurrence: CR)
  Receive Date: 20250801
  Receipt Date: 20250806
  Transmission Date: 20251020
  Serious: Yes (Other)
  Sender: JOHNSON AND JOHNSON
  Company Number: CR-JNJFOC-20250738430

PATIENT
  Sex: Male

DRUGS (2)
  1. XARELTO [Suspect]
     Active Substance: RIVAROXABAN
     Indication: Atrial fibrillation
     Route: 048
     Dates: start: 2019
  2. FINERENONE [Concomitant]
     Active Substance: FINERENONE
     Indication: Product used for unknown indication
     Dates: start: 20250721

REACTIONS (6)
  - Diabetes mellitus [Not Recovered/Not Resolved]
  - Renal injury [Recovering/Resolving]
  - Blood glucose increased [Recovering/Resolving]
  - Blood creatinine increased [Not Recovered/Not Resolved]
  - General physical health deterioration [Recovering/Resolving]
  - Wrong technique in product usage process [Not Recovered/Not Resolved]

NARRATIVE: CASE EVENT DATE: 20210101
